FAERS Safety Report 6774233-3 (Version None)
Quarter: 2010Q2

REPORT INFORMATION
  Report Type: 
  Country: None (occurrence: None)
  Receive Date: 20100617
  Receipt Date: 20100607
  Transmission Date: 20101027
  Serious: Yes (Life-Threatening)
  Sender: FDA-Public Use
  Company Number: JP-PFIZER INC-2010072529

PATIENT
  Age: 35 Year
  Sex: Female

DRUGS (2)
  1. CHAMPIX [Suspect]
     Dosage: UNK
     Dates: start: 20100510
  2. CHAMPIX [Suspect]
     Dosage: 1MG DAILY
     Dates: start: 20100524

REACTIONS (2)
  - NAUSEA [None]
  - RHABDOMYOLYSIS [None]
